FAERS Safety Report 17850692 (Version 3)
Quarter: 2020Q2

REPORT INFORMATION
  Report Type: Spontaneous
  Country: JP (occurrence: JP)
  Receive Date: 20200602
  Receipt Date: 20200626
  Transmission Date: 20200714
  Serious: Yes (Hospitalization)
  Sender: FDA-Public Use
  Company Number: JP-JNJFOC-20200528541

PATIENT
  Age: 7 Decade
  Sex: Female

DRUGS (5)
  1. XEPLION [Suspect]
     Active Substance: PALIPERIDONE PALMITATE
     Indication: SCHIZOPHRENIA
     Route: 030
     Dates: end: 20200417
  2. XEPLION [Suspect]
     Active Substance: PALIPERIDONE PALMITATE
  3. LONASEN [Concomitant]
     Active Substance: BLONANSERIN
  4. XEPLION [Suspect]
     Active Substance: PALIPERIDONE PALMITATE
  5. ZYPREXA [Concomitant]
     Active Substance: OLANZAPINE

REACTIONS (1)
  - Cholecystitis [Recovered/Resolved]

NARRATIVE: CASE EVENT DATE: 20200512
